FAERS Safety Report 7968122-6 (Version None)
Quarter: 2011Q4

REPORT INFORMATION
  Report Type: 
  Country: None (occurrence: None)
  Receive Date: 20111209
  Receipt Date: 20111128
  Transmission Date: 20120403
  Serious: Yes (Hospitalization, Other)
  Sender: FDA-Public Use
  Company Number: PHHY2009CA42878

PATIENT
  Sex: Female

DRUGS (5)
  1. SANDOSTATIN LAR [Suspect]
     Indication: VIPOMA
     Dosage: 50 MG EVERY 3 WEEKS
     Route: 030
     Dates: start: 20070723
  2. SANDOSTATIN LAR [Suspect]
     Dosage: 60 MG, EVERY 2 WEEKS
     Route: 030
  3. SANDOSTATIN LAR [Suspect]
     Dosage: 50 MG EVERY 4 WEEKS
     Route: 030
  4. AFINITOR [Suspect]
     Indication: VIPOMA
     Dosage: 10 MG, DAILY
     Route: 048
     Dates: start: 20110312, end: 20110319
  5. SANDOSTATIN LAR [Suspect]
     Dosage: 50 MG, TIW
     Route: 030

REACTIONS (12)
  - DECREASED APPETITE [None]
  - RASH [None]
  - ASTHENIA [None]
  - CONSTIPATION [None]
  - DIARRHOEA [None]
  - ABDOMINAL PAIN [None]
  - NAUSEA [None]
  - INFECTION [None]
  - MALAISE [None]
  - BILE DUCT STONE [None]
  - FATIGUE [None]
  - VOMITING [None]
